APPROVED DRUG PRODUCT: POTASSIUM CHLORIDE
Active Ingredient: POTASSIUM CHLORIDE
Strength: 10MEQ
Dosage Form/Route: CAPSULE, EXTENDED RELEASE;ORAL
Application: A202868 | Product #001
Applicant: GLENMARK PHARMACEUTICALS LTD
Approved: Jan 19, 2016 | RLD: No | RS: No | Type: DISCN